FAERS Safety Report 6151631-2 (Version None)
Quarter: 2009Q2

REPORT INFORMATION
  Report Type: 
  Country: None (occurrence: None)
  Receive Date: 20090410
  Receipt Date: 20090401
  Transmission Date: 20091009
  Serious: Yes (Other)
  Sender: FDA-Public Use
  Company Number: NL-PFIZER INC-2009192025

PATIENT

DRUGS (12)
  1. LINEZOLID [Suspect]
     Indication: BACTERIAL INFECTION
  2. FENTANYL CITRATE [Interacting]
  3. DOMPERIDONE [Concomitant]
  4. OMEPRAZOLE [Concomitant]
  5. CIPROFLOXACIN [Concomitant]
  6. RIFAMPIN [Concomitant]
  7. DICLOFENAC [Concomitant]
  8. DIGOXIN [Concomitant]
  9. MILRINONE [Concomitant]
  10. BUMETANIDE [Concomitant]
  11. MORPHINE [Concomitant]
  12. MIDAZOLAM [Concomitant]

REACTIONS (2)
  - DRUG INTERACTION [None]
  - SEROTONIN SYNDROME [None]
